FAERS Safety Report 16492451 (Version 1)
Quarter: 2019Q2

REPORT INFORMATION
  Report Type: Report from Study
  Country: US (occurrence: US)
  Receive Date: 20190628
  Receipt Date: 20190628
  Transmission Date: 20190711
  Serious: Yes (Hospitalization)
  Sender: FDA-Public Use
  Company Number: US-BIOGEN-2019BI00719195

PATIENT
  Age: 25 Year
  Sex: Female

DRUGS (1)
  1. SPINRAZA [Suspect]
     Active Substance: NUSINERSEN
     Indication: SPINAL MUSCULAR ATROPHY
     Route: 065
     Dates: start: 20190117, end: 20190321

REACTIONS (4)
  - Traumatic lumbar puncture [Unknown]
  - Back pain [Unknown]
  - Post lumbar puncture syndrome [Unknown]
  - Meningitis chemical [Unknown]

NARRATIVE: CASE EVENT DATE: 20190322
